FAERS Safety Report 5631620-4 (Version None)
Quarter: 2008Q1

REPORT INFORMATION
  Report Type: 
  Country: None (occurrence: None)
  Receive Date: 20080220
  Receipt Date: 20080213
  Transmission Date: 20080703
  Serious: Yes (Hospitalization)
  Sender: FDA-Public Use
  Company Number: JP-SP-2008-00479

PATIENT
  Age: 72 Year
  Sex: Male

DRUGS (4)
  1. IMMUCYST [Suspect]
     Indication: BLADDER CANCER
     Route: 065
     Dates: start: 20071107, end: 20071218
  2. IMMUCYST [Suspect]
     Route: 065
     Dates: start: 20071107, end: 20071218
  3. SOLIFENACIN SUCCINATE [Concomitant]
     Dates: start: 20071127
  4. FAMOTIDINE [Concomitant]
     Dates: start: 20071127

REACTIONS (10)
  - ARTHRALGIA [None]
  - CONJUNCTIVITIS [None]
  - CORNEAL EROSION [None]
  - CYSTITIS [None]
  - DYSURIA [None]
  - INCORRECT DOSE ADMINISTERED [None]
  - IRITIS [None]
  - LYMPHADENOPATHY [None]
  - OEDEMA PERIPHERAL [None]
  - POLLAKIURIA [None]
